FAERS Safety Report 8033075-1 (Version None)
Quarter: 2012Q1

REPORT INFORMATION
  Report Type: 
  Country: None (occurrence: None)
  Receive Date: 20120110
  Receipt Date: 20110921
  Transmission Date: 20120608
  Serious: No
  Sender: FDA-Public Use
  Company Number: US-BAYER-2011-090167

PATIENT
  Sex: Male

DRUGS (1)
  1. FINACEA [Suspect]
     Route: 061

REACTIONS (1)
  - DRUG INEFFECTIVE [None]
